FAERS Safety Report 5438668-3 (Version None)
Quarter: 2007Q3

REPORT INFORMATION
  Report Type: 
  Country: None (occurrence: None)
  Receive Date: 20070831
  Receipt Date: 20070824
  Transmission Date: 20080115
  Serious: Yes (Hospitalization)
  Sender: FDA-Public Use
  Company Number: US-GENENTECH-232380

PATIENT
  Sex: Female

DRUGS (10)
  1. OMALIZUMAB [Suspect]
     Indication: ASTHMA
     Dosage: 150 MG, Q4W
     Dates: start: 20030818
  2. ASMANEX TWISTHALER [Concomitant]
     Indication: ASTHMA
  3. FORADIL [Concomitant]
     Indication: ASTHMA
  4. SINGULAIR [Concomitant]
     Indication: ASTHMA
  5. THEOPHYLLINE [Concomitant]
     Indication: ASTHMA
  6. ZYRTEC [Concomitant]
     Indication: HYPERSENSITIVITY
  7. QVAR 40 [Concomitant]
     Indication: ASTHMA
  8. XOPENEX [Concomitant]
     Indication: ASTHMA
  9. PRENATAL VITAMINS [Concomitant]
     Indication: DRUG USE FOR UNKNOWN INDICATION
  10. PROTONIX [Concomitant]
     Indication: GASTROOESOPHAGEAL REFLUX DISEASE

REACTIONS (3)
  - CAESAREAN SECTION [None]
  - DRUG EXPOSURE DURING PREGNANCY [None]
  - FOETAL DISTRESS SYNDROME [None]
